FAERS Safety Report 8231467-9 (Version None)
Quarter: 2012Q1

REPORT INFORMATION
  Report Type: 
  Country: None (occurrence: None)
  Receive Date: 20120323
  Receipt Date: 20120316
  Transmission Date: 20120608
  Serious: Yes (Other)
  Sender: FDA-Public Use
  Company Number: US-AMGEN-USASP2012017331

PATIENT
  Age: 60 Year
  Sex: Male

DRUGS (1)
  1. ENBREL [Suspect]
     Indication: RHEUMATOID ARTHRITIS
     Dosage: 50 MG, QWK
     Dates: start: 20080901

REACTIONS (5)
  - RHEUMATOID ARTHRITIS [None]
  - DYSPNOEA [None]
  - BLOOD GLUCOSE INCREASED [None]
  - ABASIA [None]
  - SINUSITIS [None]
